FAERS Safety Report 9369807 (Version 1)
Quarter: 2013Q2

REPORT INFORMATION
  Report Type: Spontaneous
  Country: FR (occurrence: FR)
  Receive Date: 20130626
  Receipt Date: 20130626
  Transmission Date: 20140414
  Serious: Yes (Hospitalization)
  Sender: FDA-Public Use
  Company Number: FR-PFIZER INC-2013188888

PATIENT
  Age: 91 Year
  Sex: Female

DRUGS (7)
  1. CORDARONE [Suspect]
     Indication: ARRHYTHMIA
     Dosage: UNK
     Route: 048
     Dates: start: 201306
  2. KARDEGIC [Suspect]
     Dosage: 75 MG, DAILY
     Route: 048
  3. STILNOX [Suspect]
     Dosage: 5 MG, DAILY
     Route: 048
  4. FUROSEMIDE [Suspect]
     Indication: CARDIAC FAILURE
     Dosage: 40 MG, DAILY
     Route: 048
     Dates: start: 20130511, end: 20130610
  5. VASTAREL [Suspect]
     Indication: DIZZINESS
     Dosage: 20 MG, 2X/DAY
     Route: 048
  6. ODRIK [Suspect]
     Indication: HYPERTENSION
     Dosage: 2 MG, DAILY
     Route: 048
  7. ISORYTHM [Suspect]
     Indication: ARRHYTHMIA
     Dosage: 125 MG, DAILY
     Route: 048

REACTIONS (3)
  - Dizziness [Recovered/Resolved]
  - Fall [Unknown]
  - Pulmonary oedema [Recovered/Resolved]
